FAERS Safety Report 8261422-4 (Version None)
Quarter: 2012Q2

REPORT INFORMATION
  Report Type: 
  Country: None (occurrence: None)
  Receive Date: 20120405
  Receipt Date: 20120402
  Transmission Date: 20120825
  Serious: Yes (Other)
  Sender: FDA-Public Use
  Company Number: US-PFIZER INC-2012082886

PATIENT
  Sex: Female
  Weight: 79.365 kg

DRUGS (3)
  1. PLAVIX [Concomitant]
     Dosage: 75 MG, 1X/DAY
  2. BENICAR [Concomitant]
     Indication: HYPERTENSION
     Dosage: 20 MG, 1X/DAY
  3. LYRICA [Suspect]
     Indication: FIBROMYALGIA
     Dosage: UNK
     Route: 048
     Dates: start: 20110901, end: 20120101

REACTIONS (4)
  - ALOPECIA [None]
  - HAEMOGLOBIN DECREASED [None]
  - WEIGHT INCREASED [None]
  - HYPERSENSITIVITY [None]
